FAERS Safety Report 5374569-7 (Version None)
Quarter: 2007Q2

REPORT INFORMATION
  Report Type: 
  Country: None (occurrence: None)
  Receive Date: 20070627
  Receipt Date: 20070627
  Transmission Date: 20071010
  Serious: No
  Sender: FDA-Public Use
  Company Number: None

PATIENT
  Age: 54 Year
  Sex: Male

DRUGS (1)
  1. FLUOCINOLONE ACETONIDE [Suspect]
     Indication: PSORIASIS
     Dosage: 0.025% BID TOP
     Route: 061
     Dates: start: 20070328, end: 20070619

REACTIONS (2)
  - ERYTHEMA [None]
  - SKIN BURNING SENSATION [None]
